FAERS Safety Report 7319751-4 (Version None)
Quarter: 2011Q1

REPORT INFORMATION
  Report Type: 
  Country: None (occurrence: None)
  Receive Date: 20110228
  Receipt Date: 20100831
  Transmission Date: 20110831
  Serious: No
  Sender: FDA-Public Use
  Company Number: A0879895A

PATIENT
  Age: 16 Year
  Sex: Male
  Weight: 81.4 kg

DRUGS (3)
  1. LAMICTAL [Suspect]
     Indication: CONVULSION
     Dates: start: 20100301
  2. SERTRALINE HYDROCHLORIDE [Suspect]
     Indication: AGGRESSION
     Dosage: 300MG PER DAY
     Dates: start: 20100701
  3. DEPAKOTE [Suspect]
     Indication: CONVULSION
     Dates: start: 20040101

REACTIONS (4)
  - SOMNOLENCE [None]
  - TONGUE BLISTERING [None]
  - DIZZINESS [None]
  - FEELING ABNORMAL [None]
